FAERS Safety Report 12537523 (Version 1)
Quarter: 2016Q3

REPORT INFORMATION
  Report Type: Other
  Country: CA (occurrence: CA)
  Receive Date: 20160707
  Receipt Date: 20160707
  Transmission Date: 20161109
  Serious: Yes (Other)
  Sender: FDA-Public Use
  Company Number: CA-AMAG PHARMACEUTICALS, INC.-AMAG201500772

PATIENT
  Age: 86 Year
  Sex: Female
  Weight: 56 kg

DRUGS (5)
  1. FERAHEME [Suspect]
     Active Substance: FERUMOXYTOL NON-STOICHIOMETRIC MAGNETITE
     Indication: SERUM FERRITIN DECREASED
  2. ELTROXIN [Concomitant]
     Active Substance: LEVOTHYROXINE
     Dosage: 50 ?G, QD
  3. FERAMAX [Concomitant]
     Active Substance: IRON\POLYSACCHARIDES
     Dosage: UNK
  4. FERAHEME [Suspect]
     Active Substance: FERUMOXYTOL NON-STOICHIOMETRIC MAGNETITE
     Indication: BLOOD IRON DECREASED
     Dosage: 510 MG, SINGLE
     Route: 042
     Dates: start: 20140711, end: 20140711
  5. TECTA [Concomitant]
     Active Substance: PANTOPRAZOLE MAGNESIUM
     Dosage: 40 MG, QD

REACTIONS (4)
  - Chest pain [Unknown]
  - Ear discomfort [Unknown]
  - Flushing [Unknown]
  - Head discomfort [Unknown]

NARRATIVE: CASE EVENT DATE: 20140711
